FAERS Safety Report 7323647-1 (Version None)
Quarter: 2011Q1

REPORT INFORMATION
  Report Type: 
  Country: None (occurrence: None)
  Receive Date: 20110216
  Receipt Date: 20110207
  Transmission Date: 20110831
  Serious: Yes (Other)
  Sender: FDA-Public Use
  Company Number: 2010AL002944

PATIENT
  Age: 59 Year
  Sex: Female

DRUGS (13)
  1. POTASSIUM CHLORIDE [Concomitant]
  2. PREMARIN [Concomitant]
  3. FONIFIBRATE [Concomitant]
  4. DITROPAN [Concomitant]
  5. LOTENSIN [Concomitant]
  6. TOLTERODINE TARTRATE [Concomitant]
  7. LEVOTHYROXINE [Concomitant]
  8. HYDROCHLOROTHIAZIDE [Concomitant]
  9. PREVACID [Concomitant]
  10. METOCLOPRAMIDE [Suspect]
     Dosage: 10 MG; PO
     Route: 048
     Dates: start: 19990101, end: 20080801
  11. FOXAMAX [Concomitant]
  12. CATAPRES [Concomitant]
  13. OMEPRAZOLE [Concomitant]

REACTIONS (6)
  - ECONOMIC PROBLEM [None]
  - DYSTONIA [None]
  - EMOTIONAL DISORDER [None]
  - TARDIVE DYSKINESIA [None]
  - EXTRAPYRAMIDAL DISORDER [None]
  - DYSKINESIA [None]
